FAERS Safety Report 4387965-1 (Version None)
Quarter: 2004Q2

REPORT INFORMATION
  Report Type: 
  Country: None (occurrence: None)
  Receive Date: 20040607
  Receipt Date: 20040204
  Transmission Date: 20050107
  Serious: Yes (Disabling)
  Sender: FDA-Public Use
  Company Number: 358221

PATIENT
  Age: 16 Year
  Sex: Female
  Weight: 132.9 kg

DRUGS (1)
  1. ACCUTANE [Suspect]
     Indication: ACNE
     Dosage: 2 PER DAY ORAL
     Route: 048
     Dates: start: 19990902, end: 20001120

REACTIONS (3)
  - ADVERSE EVENT [None]
  - AMENORRHOEA [None]
  - POLYCYSTIC OVARIES [None]
